FAERS Safety Report 17954179 (Version 2)
Quarter: 2020Q3

REPORT INFORMATION
  Report Type: Report from Study
  Country: None (occurrence: US)
  Receive Date: 20200629
  Receipt Date: 20200714
  Transmission Date: 20201103
  Serious: Yes (Hospitalization)
  Sender: FDA-Public Use
  Company Number: US-ABBVIE-20K-163-3356238-00

PATIENT
  Sex: Male

DRUGS (2)
  1. HUMIRA [Suspect]
     Active Substance: ADALIMUMAB
     Indication: IRITIS
     Route: 058
     Dates: start: 202006
  2. HUMIRA [Suspect]
     Active Substance: ADALIMUMAB
     Indication: ANKYLOSING SPONDYLITIS
     Route: 058
     Dates: start: 20191218, end: 202005

REACTIONS (29)
  - Fall [Not Recovered/Not Resolved]
  - Uveitis [Recovered/Resolved]
  - Musculoskeletal stiffness [Recovered/Resolved]
  - Back pain [Unknown]
  - Loss of personal independence in daily activities [Unknown]
  - Therapeutic response shortened [Unknown]
  - Joint swelling [Recovering/Resolving]
  - Hypotension [Unknown]
  - Musculoskeletal discomfort [Unknown]
  - Arthralgia [Unknown]
  - Diverticulitis [Unknown]
  - Finger deformity [Recovering/Resolving]
  - Mobility decreased [Unknown]
  - Inflammation [Recovering/Resolving]
  - Arthritis [Not Recovered/Not Resolved]
  - Cardiac failure [Unknown]
  - Overweight [Unknown]
  - Monoparesis [Recovered/Resolved]
  - Peripheral swelling [Recovering/Resolving]
  - Pain in extremity [Recovering/Resolving]
  - Hypoaesthesia [Unknown]
  - Suspected COVID-19 [Unknown]
  - Unevaluable event [Not Recovered/Not Resolved]
  - Neck pain [Unknown]
  - Irritable bowel syndrome [Unknown]
  - Pulmonary thrombosis [Unknown]
  - Dysstasia [Unknown]
  - Balance disorder [Unknown]
  - Blood potassium decreased [Unknown]

NARRATIVE: CASE EVENT DATE: 2020
